FAERS Safety Report 20932049 (Version 1)
Quarter: 2022Q2

REPORT INFORMATION
  Report Type: Spontaneous
  Country: NZ (occurrence: NZ)
  Receive Date: 20220608
  Receipt Date: 20220608
  Transmission Date: 20220721
  Serious: Yes (Other)
  Sender: FDA-Public Use
  Company Number: NZ-ROCHE-3107646

PATIENT
  Sex: Female

DRUGS (1)
  1. ERLOTINIB [Suspect]
     Active Substance: ERLOTINIB
     Indication: Lung neoplasm malignant
     Dosage: UNK UNK, UNKNOWN FREQ.
     Route: 048

REACTIONS (9)
  - Pulmonary oedema [Unknown]
  - Disease progression [Unknown]
  - Dry skin [Unknown]
  - Rash [Unknown]
  - Decreased appetite [Unknown]
  - Alopecia [Unknown]
  - Hair texture abnormal [Unknown]
  - Hair texture abnormal [Unknown]
  - Hair texture abnormal [Unknown]
